FAERS Safety Report 5514243-7 (Version None)
Quarter: 2007Q4

REPORT INFORMATION
  Report Type: 
  Country: None (occurrence: None)
  Receive Date: 20071113
  Receipt Date: 20071104
  Transmission Date: 20080405
  Serious: Yes (Other)
  Sender: FDA-Public Use
  Company Number: JP-ELI_LILLY_AND_COMPANY-JP200711001058

PATIENT
  Sex: Female
  Weight: 46.2 kg

DRUGS (8)
  1. RALOXIFENE HYDROCHLORIDE [Suspect]
     Indication: OSTEOPOROSIS POSTMENOPAUSAL
     Dosage: 60 MG, DAILY (1/D)
     Route: 048
     Dates: start: 20050207, end: 20060516
  2. GLAKAY [Concomitant]
     Indication: OSTEOPOROSIS POSTMENOPAUSAL
     Dosage: 3 D/F, DAILY (1/D)
     Route: 048
  3. WASSER V GRAN. [Concomitant]
     Indication: VITAMIN SUPPLEMENTATION
     Dosage: 3 G, DAILY (1/D)
     Route: 048
  4. CALCIUM CARBONATE [Concomitant]
     Indication: OSTEOPOROSIS POSTMENOPAUSAL
     Dosage: 3 G, DAILY (1/D)
     Route: 048
  5. SILECE [Concomitant]
     Dosage: 0.5 MG, DAILY (1/D)
     Route: 048
  6. STOGAR [Concomitant]
     Indication: GASTRIC ULCER
     Dosage: 10 MG, DAILY (1/D)
     Route: 048
  7. KETOBUN A [Concomitant]
     Indication: HYPERURICAEMIA
     Dosage: 50 MG, DAILY (1/D)
     Route: 048
  8. MUCOSTA [Concomitant]
     Indication: GASTRIC ULCER
     Dosage: 200 MG, DAILY (1/D)
     Route: 048

REACTIONS (1)
  - OVARIAN ADENOMA [None]
